FAERS Safety Report 8388107-8 (Version None)
Quarter: 2012Q2

REPORT INFORMATION
  Report Type: 
  Country: None (occurrence: None)
  Receive Date: 20120525
  Receipt Date: 20120517
  Transmission Date: 20120825
  Serious: Yes (Hospitalization)
  Sender: FDA-Public Use
  Company Number: JP-VERTEX PHARMACEUTICALS INC.-AE-2012-007344

PATIENT
  Age: 47 Year
  Sex: Male

DRUGS (8)
  1. LANSOPRAZOLE [Concomitant]
     Route: 048
     Dates: start: 20120424, end: 20120510
  2. NEO-MERCAZOLE TAB [Concomitant]
     Route: 048
  3. PEG-INTRON [Concomitant]
     Indication: HEPATITIS C
     Route: 058
     Dates: start: 20120424, end: 20120507
  4. LOXONIN [Concomitant]
     Route: 048
     Dates: start: 20120424, end: 20120510
  5. RIBAVIRIN [Concomitant]
     Indication: HEPATITIS C
     Route: 048
     Dates: start: 20120424, end: 20120510
  6. JUZENTAIHOTO [Concomitant]
     Route: 048
     Dates: start: 20120424, end: 20120510
  7. TELAVIC (TELAPREVIR) [Suspect]
     Indication: HEPATITIS C
     Route: 048
     Dates: start: 20120424, end: 20120510
  8. MUCOSTA [Concomitant]
     Route: 048
     Dates: start: 20120424, end: 20120510

REACTIONS (3)
  - MALAISE [None]
  - DECREASED APPETITE [None]
  - BLOOD URIC ACID INCREASED [None]
